FAERS Safety Report 6147349-2 (Version None)
Quarter: 2009Q2

REPORT INFORMATION
  Report Type: 
  Country: None (occurrence: None)
  Receive Date: 20090408
  Receipt Date: 20090403
  Transmission Date: 20091009
  Serious: Yes (Hospitalization, Disabling, Other)
  Sender: FDA-Public Use
  Company Number: PHEH2006US13646

PATIENT
  Sex: Male

DRUGS (4)
  1. ZOMETA [Suspect]
  2. TAMOXIFEN CITRATE [Concomitant]
  3. NAVELBINE [Concomitant]
  4. FASLODEX [Concomitant]

REACTIONS (11)
  - ANXIETY [None]
  - DECREASED INTEREST [None]
  - ENDODONTIC PROCEDURE [None]
  - GASTROINTESTINAL HAEMORRHAGE [None]
  - GENERAL PHYSICAL HEALTH DETERIORATION [None]
  - IMPAIRED HEALING [None]
  - OSTEONECROSIS [None]
  - PAIN [None]
  - PAIN IN JAW [None]
  - TOOTH EXTRACTION [None]
  - TOOTH FRACTURE [None]
